FAERS Safety Report 4821538-9 (Version None)
Quarter: 2005Q4

REPORT INFORMATION
  Report Type: 
  Country: None (occurrence: None)
  Receive Date: 20051103
  Receipt Date: 20051018
  Transmission Date: 20060501
  Serious: No
  Sender: FDA-Public Use
  Company Number: USA0507104154

PATIENT
  Age: 51 Year
  Sex: Female

DRUGS (9)
  1. FORTEO [Suspect]
     Indication: OSTEOPOROSIS
     Dosage: 20 UG/1 DAY
     Dates: start: 20050711
  2. PREVACID [Concomitant]
  3. COREG [Concomitant]
  4. LANOXIN [Concomitant]
  5. CHROMAGEN [Concomitant]
  6. ZELNORM [Concomitant]
  7. NITRO (GLYCERYL TRINITRATE) [Concomitant]
  8. REMERON [Concomitant]
  9. MIRALAX [Concomitant]

REACTIONS (4)
  - CARDIAC FLUTTER [None]
  - FATIGUE [None]
  - PAIN IN EXTREMITY [None]
  - PHARMACEUTICAL PRODUCT COMPLAINT [None]
